FAERS Safety Report 7249892-1 (Version None)
Quarter: 2011Q1

REPORT INFORMATION
  Report Type: 
  Country: None (occurrence: None)
  Receive Date: 20110128
  Receipt Date: 20100728
  Transmission Date: 20110831
  Serious: No
  Sender: FDA-Public Use
  Company Number: A0875252A

PATIENT
  Age: 47 Year
  Sex: Male

DRUGS (1)
  1. WELLBUTRIN [Suspect]
     Indication: DEPRESSION
     Route: 065
     Dates: end: 20100201

REACTIONS (1)
  - DRUG SCREEN FALSE POSITIVE [None]
